FAERS Safety Report 15290524 (Version 1)
Quarter: 2018Q3

REPORT INFORMATION
  Report Type: Spontaneous
  Country: US (occurrence: US)
  Receive Date: 20180805
  Receipt Date: 20180805
  Transmission Date: 20181010
  Serious: Yes (Life-Threatening, Hospitalization, Disabling, Other)
  Sender: FDA-Public Use
  Company Number: None

PATIENT
  Age: 37 Year
  Sex: Male
  Weight: 74.25 kg

DRUGS (1)
  1. STELARA [Suspect]
     Active Substance: USTEKINUMAB
     Indication: CROHN^S DISEASE
     Dosage: ?          OTHER STRENGTH:NOT SURE;QUANTITY:1 INJECTION(S);?
     Route: 042
     Dates: start: 20170720, end: 20170720

REACTIONS (12)
  - Nephrolithiasis [None]
  - Headache [None]
  - Feeling abnormal [None]
  - Heart rate abnormal [None]
  - Visual impairment [None]
  - Mood swings [None]
  - Pyrexia [None]
  - Vision blurred [None]
  - Fatigue [None]
  - Weight decreased [None]
  - Depression [None]
  - Food allergy [None]

NARRATIVE: CASE EVENT DATE: 20170720
